FAERS Safety Report 19083166 (Version 1)
Quarter: 2021Q2

REPORT INFORMATION
  Report Type: Spontaneous
  Country: CN (occurrence: CN)
  Receive Date: 20210401
  Receipt Date: 20210401
  Transmission Date: 20210717
  Serious: Yes (Other)
  Sender: FDA-Public Use
  Company Number: CN-EISAI MEDICAL RESEARCH-EC-2021-090126

PATIENT
  Age: 48 Year
  Sex: Female
  Weight: 46.5 kg

DRUGS (1)
  1. RABEPRAZOLE [Suspect]
     Active Substance: RABEPRAZOLE
     Indication: ANTACID THERAPY
     Route: 048
     Dates: start: 20210308, end: 20210318

REACTIONS (4)
  - Hyperhidrosis [Unknown]
  - Chest discomfort [Unknown]
  - Anaemia [Unknown]
  - Nausea [Unknown]

NARRATIVE: CASE EVENT DATE: 20210315
